FAERS Safety Report 10662329 (Version 2)
Quarter: 2014Q4

REPORT INFORMATION
  Report Type: Spontaneous
  Country: US (occurrence: US)
  Receive Date: 20141218
  Receipt Date: 20141218
  Transmission Date: 20150529
  Serious: Yes (Other)
  Sender: FDA-Public Use
  Company Number: US-SA-2014SA084848

PATIENT
  Sex: Female

DRUGS (2)
  1. LANTUS [Suspect]
     Active Substance: INSULIN GLARGINE
     Indication: HYPERGLYCAEMIA
     Dosage: DOSE:75 UNIT(S)
     Route: 065
  2. SOLOSTAR [Concomitant]
     Active Substance: DEVICE

REACTIONS (2)
  - Syncope [Unknown]
  - Swelling [Recovered/Resolved]
